FAERS Safety Report 4919394-3 (Version None)
Quarter: 2006Q1

REPORT INFORMATION
  Report Type: 
  Country: None (occurrence: None)
  Receive Date: 20060222
  Receipt Date: 20050919
  Transmission Date: 20060701
  Serious: No
  Sender: FDA-Public Use
  Company Number: US-MERCK-0509USA02865

PATIENT
  Age: 77 Year
  Sex: Female
  Weight: 61 kg

DRUGS (13)
  1. VIOXX [Suspect]
     Indication: OSTEOARTHRITIS
     Route: 048
     Dates: start: 20020101, end: 20040101
  2. ATENOLOL [Concomitant]
     Route: 065
  3. LASIX [Concomitant]
     Route: 065
  4. NEXIUM [Concomitant]
     Route: 065
  5. PROMETHAZINE [Concomitant]
     Route: 065
  6. KADIAN [Concomitant]
     Route: 065
  7. LEXAPRO [Concomitant]
     Route: 065
  8. POTASSIUM (UNSPECIFIED) [Concomitant]
     Route: 065
  9. CLOTRIMAZOLE [Concomitant]
     Route: 065
  10. NIZORAL [Concomitant]
     Route: 065
  11. DESONIDE [Concomitant]
     Route: 065
  12. PROBIOTICS (UNSPECIFIED) [Concomitant]
     Route: 065
  13. OMNICEF [Concomitant]
     Route: 065

REACTIONS (12)
  - CARDIAC FAILURE [None]
  - CEREBROVASCULAR ACCIDENT [None]
  - CHEST PAIN [None]
  - GASTROOESOPHAGEAL REFLUX DISEASE [None]
  - HEPATOCELLULAR DAMAGE [None]
  - HYPERTENSION [None]
  - MYOCARDIAL INFARCTION [None]
  - OEDEMA PERIPHERAL [None]
  - RENAL DISORDER [None]
  - SKIN INJURY [None]
  - THROMBOSIS [None]
  - ULCER [None]
